FAERS Safety Report 17117459 (Version 1)
Quarter: 2019Q4

REPORT INFORMATION
  Report Type: Spontaneous
  Country: DE (occurrence: DE)
  Receive Date: 20191205
  Receipt Date: 20191205
  Transmission Date: 20200122
  Serious: Yes (Hospitalization)
  Sender: FDA-Public Use
  Company Number: PHHY2019DE107396

PATIENT
  Age: 49 Year
  Sex: Female
  Weight: 66 kg

DRUGS (2)
  1. CIPROFLOXACIN. [Suspect]
     Active Substance: CIPROFLOXACIN
     Indication: C-REACTIVE PROTEIN INCREASED
     Dosage: 500 MG, Q12H (2X500 MG FOR 10 DAYS)
     Route: 048
     Dates: start: 20170828, end: 20170907
  2. CIPROFLOXACIN. [Suspect]
     Active Substance: CIPROFLOXACIN
     Indication: INFLAMMATION

REACTIONS (23)
  - Headache [Recovering/Resolving]
  - Joint swelling [Recovered/Resolved with Sequelae]
  - Heart rate increased [Recovering/Resolving]
  - Abdominal discomfort [Recovering/Resolving]
  - Musculoskeletal stiffness [Not Recovered/Not Resolved]
  - Tendon pain [Recovered/Resolved with Sequelae]
  - Depression [Not Recovered/Not Resolved]
  - Inflammation [Recovered/Resolved with Sequelae]
  - Overgrowth bacterial [Recovering/Resolving]
  - Mobility decreased [Recovered/Resolved with Sequelae]
  - Palpitations [Recovering/Resolving]
  - Fatigue [Recovering/Resolving]
  - Somnolence [Recovering/Resolving]
  - Dysbiosis [Recovering/Resolving]
  - Arthralgia [Recovered/Resolved with Sequelae]
  - Tendon disorder [Not Recovered/Not Resolved]
  - Fasciitis [Not Recovered/Not Resolved]
  - Abdominal pain lower [Not Recovered/Not Resolved]
  - Asthenia [Not Recovered/Not Resolved]
  - Disturbance in attention [Recovering/Resolving]
  - Fatigue [Not Recovered/Not Resolved]
  - Connective tissue disorder [Recovering/Resolving]
  - Sleep disorder [Recovering/Resolving]

NARRATIVE: CASE EVENT DATE: 201708
